FAERS Safety Report 8362748-6 (Version None)
Quarter: 2012Q1

REPORT INFORMATION
  Report Type: 
  Country: None (occurrence: None)
  Receive Date: 20120323
  Receipt Date: 20110830
  Transmission Date: 20120608
  Serious: Yes (Disabling)
  Sender: FDA-Public Use
  Company Number: 163-21880-11042749

PATIENT
  Age: 68 Year
  Sex: Female

DRUGS (6)
  1. OXYCODONE HCL [Concomitant]
  2. DEXAMETHASONE [Concomitant]
  3. REVLIMID [Suspect]
     Indication: MULTIPLE MYELOMA
     Dosage: 25 MG, 1 IN 1 D, PO
     Route: 048
     Dates: start: 20080601, end: 20110501
  4. PANGESIC (PICOLAMINE SALICYLATE) [Concomitant]
  5. HUMALOG [Concomitant]
  6. ASPIRIN [Concomitant]

REACTIONS (1)
  - PLATELET COUNT DECREASED [None]
